FAERS Safety Report 9008900 (Version 7)
Quarter: 2014Q3

REPORT INFORMATION
  Report Type: Spontaneous
  Country: US (occurrence: US)
  Receive Date: 20130111
  Receipt Date: 20140714
  Transmission Date: 20150326
  Serious: Yes (Hospitalization, Other)
  Sender: FDA-Public Use
  Company Number: US-009507513-1301USA002953

PATIENT
  Sex: Female
  Weight: 75.28 kg

DRUGS (12)
  1. VITAMIN D [Concomitant]
     Active Substance: CHOLECALCIFEROL
     Dosage: 1000 MG, BID
     Dates: start: 2000
  2. MAGNESIUM (UNSPECIFIED) [Concomitant]
     Active Substance: MAGNESIUM
     Dosage: 250 MG, QD
     Dates: start: 2000
  3. DR DAVID WILLIAMS PROBIOTIC ADVANTAGE [Concomitant]
     Dosage: 1 DF, QD
     Dates: start: 2000
  4. FOSAMAX [Suspect]
     Active Substance: ALENDRONATE SODIUM
     Indication: OSTEOPOROSIS
     Dosage: 70 MG, QW
     Route: 048
     Dates: start: 200407, end: 200706
  5. ALENDRONATE SODIUM. [Suspect]
     Active Substance: ALENDRONATE SODIUM
     Indication: OSTEOPOROSIS
     Dosage: 70 MG, QW
     Route: 048
     Dates: start: 20080514, end: 201007
  6. VITAMIN D [Concomitant]
     Active Substance: CHOLECALCIFEROL
     Dosage: 2000 IU, UNK
  7. VITAMINS (UNSPECIFIED) [Concomitant]
     Active Substance: VITAMINS
     Dosage: 1 DF, QD
     Dates: start: 2000
  8. FOSAMAX PLUS D [Suspect]
     Active Substance: ALENDRONATE SODIUM\CHOLECALCIFEROL
     Indication: OSTEOPOROSIS
     Dosage: UNK UNK, QW
     Route: 048
     Dates: start: 200706, end: 200805
  9. CITRACAL [Concomitant]
     Active Substance: CALCIUM CITRATE
     Dosage: 1000 MG, BID
     Dates: start: 2000
  10. OMEGA-3 MARINE TRIGLYCERIDES [Concomitant]
     Active Substance: FISH OIL
     Dosage: 1000 MG, QD
     Dates: start: 2000
  11. XANAX [Concomitant]
     Active Substance: ALPRAZOLAM
     Indication: POOR QUALITY SLEEP
     Dosage: 0.25 MG, HS
     Dates: start: 2000
  12. VITAMIN B (UNSPECIFIED) [Concomitant]
     Dosage: 2500 MG, QD
     Dates: start: 2000

REACTIONS (29)
  - Surgery [Unknown]
  - Vertebroplasty [Unknown]
  - Paraesthesia [Unknown]
  - Urinary incontinence [Unknown]
  - Rib fracture [Unknown]
  - Body height decreased [Unknown]
  - Bone lesion [Unknown]
  - Femur fracture [Unknown]
  - Vascular calcification [Unknown]
  - Joint effusion [Unknown]
  - Anxiety [Not Recovered/Not Resolved]
  - Catheterisation cardiac [Unknown]
  - Drug ineffective [Unknown]
  - Pneumonia [Unknown]
  - Osteopenia [Unknown]
  - Fear of falling [Not Recovered/Not Resolved]
  - Spinal compression fracture [Recovered/Resolved]
  - Faecal incontinence [Unknown]
  - Exostosis [Unknown]
  - Osteomalacia [Unknown]
  - Osteopenia [Unknown]
  - Spinal compression fracture [Recovering/Resolving]
  - Osteoarthritis [Unknown]
  - Thoracic vertebral fracture [Unknown]
  - Kyphosis [Unknown]
  - Hysterectomy [Unknown]
  - Spinal column stenosis [Unknown]
  - Bone disorder [Unknown]
  - Synovial cyst [Unknown]

NARRATIVE: CASE EVENT DATE: 2005
